FAERS Safety Report 6828793-4 (Version None)
Quarter: 2010Q3

REPORT INFORMATION
  Report Type: 
  Country: None (occurrence: None)
  Receive Date: 20100709
  Receipt Date: 20070220
  Transmission Date: 20110219
  Serious: Yes (Other)
  Sender: FDA-Public Use
  Company Number: US-PFIZER INC-2007005453

PATIENT
  Sex: Male

DRUGS (2)
  1. CHANTIX [Suspect]
  2. NICOTINE [Suspect]

REACTIONS (6)
  - ANGER [None]
  - CRYING [None]
  - DEPRESSION [None]
  - DRUG WITHDRAWAL SYNDROME [None]
  - FRUSTRATION [None]
  - SUICIDAL IDEATION [None]
